FAERS Safety Report 19180127 (Version 2)
Quarter: 2021Q2

REPORT INFORMATION
  Report Type: Spontaneous
  Country: AU (occurrence: AU)
  Receive Date: 20210426
  Receipt Date: 20210517
  Transmission Date: 20210717
  Serious: Yes (Hospitalization, Other)
  Sender: FDA-Public Use
  Company Number: AU-GILEAD-2021-0525599

PATIENT
  Age: 50 Year
  Sex: Male

DRUGS (8)
  1. EPCLUSA [Suspect]
     Active Substance: SOFOSBUVIR\VELPATASVIR
     Indication: CHRONIC HEPATITIS C
     Dosage: RECEIVED ONE COURSE
     Route: 065
     Dates: start: 20200421, end: 20200702
  2. TACROLIMUS. [Concomitant]
     Active Substance: TACROLIMUS
  3. AZATHIOPRINE. [Concomitant]
     Active Substance: AZATHIOPRINE
  4. BACTRIM [Concomitant]
     Active Substance: SULFAMETHOXAZOLE\TRIMETHOPRIM
  5. AMLODIPINE [Concomitant]
     Active Substance: AMLODIPINE BESYLATE
  6. METOPROLOL. [Concomitant]
     Active Substance: METOPROLOL
  7. PREDNISOLONE. [Concomitant]
     Active Substance: PREDNISOLONE
  8. PANTOPRAZOLE [Concomitant]
     Active Substance: PANTOPRAZOLE

REACTIONS (2)
  - Treatment failure [Not Recovered/Not Resolved]
  - Liver transplant [Not Recovered/Not Resolved]

NARRATIVE: CASE EVENT DATE: 202104
